FAERS Safety Report 4589387-7 (Version None)
Quarter: 2005Q1

REPORT INFORMATION
  Report Type: 
  Country: None (occurrence: None)
  Receive Date: 20050216
  Receipt Date: 20050207
  Transmission Date: 20050727
  Serious: Yes (Hospitalization)
  Sender: FDA-Public Use
  Company Number: MEDI-0002822

PATIENT
  Age: 77 Year
  Sex: Female
  Weight: 45.8133 kg

DRUGS (17)
  1. ETHYOL [Suspect]
     Indication: RADIOTHERAPY
     Dosage: 500MG, 5 IN 1 WK, SUBCUTANEOUS
     Route: 058
     Dates: start: 20050106, end: 20050125
  2. RADIATION THERAPY [Concomitant]
  3. ZOFRAN [Concomitant]
  4. CATAPRIL [Concomitant]
  5. ATENOLOL [Concomitant]
  6. FOSAMAX [Concomitant]
  7. HYDROCHLOROTHIAZIDE [Concomitant]
  8. ASPIRIN [Concomitant]
  9. LIPITOR [Concomitant]
  10. TYLENOL #3 (CODEINE PHOSPHATE, PARACETAMOL) [Concomitant]
  11. OPC3 [Concomitant]
  12. CALCIUM (CALCIUM) [Concomitant]
  13. VITAMINS [Concomitant]
  14. VICODIN [Concomitant]
  15. NYSTATIN [Concomitant]
  16. DIFLUCAN [Concomitant]
  17. BIOFINE [Concomitant]

REACTIONS (4)
  - HYPOTENSION [None]
  - IMPLANT SITE INFECTION [None]
  - LOCALISED INFECTION [None]
  - PNEUMONIA [None]
